FAERS Safety Report 7211206-0 (Version None)
Quarter: 2011Q1

REPORT INFORMATION
  Report Type: 
  Country: None (occurrence: None)
  Receive Date: 20110105
  Receipt Date: 20101222
  Transmission Date: 20110831
  Serious: Yes (Other)
  Sender: FDA-Public Use
  Company Number: US-CELGENEUS-163-21880-10123133

PATIENT
  Sex: Male

DRUGS (4)
  1. REVLIMID [Suspect]
     Route: 048
     Dates: start: 20090401
  2. REVLIMID [Suspect]
     Indication: MULTIPLE MYELOMA
     Route: 048
     Dates: start: 20071201
  3. REVLIMID [Suspect]
     Route: 048
     Dates: start: 20080201
  4. REVLIMID [Suspect]
     Route: 048
     Dates: start: 20100501

REACTIONS (2)
  - DEAFNESS UNILATERAL [None]
  - NEUROPATHY PERIPHERAL [None]
